FAERS Safety Report 11868152 (Version 1)
Quarter: 2015Q4

REPORT INFORMATION
  Report Type: Spontaneous
  Country: US (occurrence: US)
  Receive Date: 20151224
  Receipt Date: 20151224
  Transmission Date: 20160305
  Serious: No
  Sender: FDA-Public Use
  Company Number: US-B.I. PHARMACEUTICALS,INC./RIDGEFIELD-2015-BI-69778BP

PATIENT
  Age: 83 Year
  Sex: Male

DRUGS (4)
  1. HYDROCODONE [Concomitant]
     Active Substance: HYDROCODONE
     Indication: PAIN
     Route: 065
  2. CARAFATE [Concomitant]
     Active Substance: SUCRALFATE
     Indication: ABDOMINAL DISCOMFORT
     Route: 065
  3. PRADAXA [Suspect]
     Active Substance: DABIGATRAN ETEXILATE MESYLATE
     Indication: ATRIAL FIBRILLATION
     Dosage: 150 MG
     Route: 048
     Dates: start: 2013
  4. DIAZEPAM. [Concomitant]
     Active Substance: DIAZEPAM
     Indication: NERVE INJURY
     Route: 065

REACTIONS (3)
  - Diarrhoea [Not Recovered/Not Resolved]
  - Abdominal discomfort [Not Recovered/Not Resolved]
  - Skin discolouration [Not Recovered/Not Resolved]

NARRATIVE: CASE EVENT DATE: 20151204
